FAERS Safety Report 9269980 (Version 2)
Quarter: 2013Q2

REPORT INFORMATION
  Report Type: Spontaneous
  Country: US (occurrence: US)
  Receive Date: 20130503
  Receipt Date: 20130612
  Transmission Date: 20140414
  Serious: No
  Sender: FDA-Public Use
  Company Number: US-009507513-1304USA014916

PATIENT
  Age: 47 Year
  Sex: Male
  Weight: 131.52 kg

DRUGS (3)
  1. CLARITIN [Suspect]
     Indication: NASOPHARYNGITIS
     Dosage: 10 MG, QD
     Route: 048
     Dates: start: 20130411, end: 20130412
  2. CLARITIN [Suspect]
     Indication: INFLUENZA
  3. CLARITIN [Suspect]
     Indication: MEDICAL OBSERVATION

REACTIONS (1)
  - Drug ineffective [Unknown]
